FAERS Safety Report 4388307-8 (Version None)
Quarter: 2004Q2

REPORT INFORMATION
  Report Type: 
  Country: None (occurrence: None)
  Receive Date: 20040629
  Receipt Date: 20040618
  Transmission Date: 20050107
  Serious: Yes (Disabling)
  Sender: FDA-Public Use
  Company Number: 2004UW12808

PATIENT
  Sex: Male

DRUGS (1)
  1. CRESTOR [Suspect]
     Dates: start: 20031101

REACTIONS (8)
  - BURNING SENSATION [None]
  - CHEILITIS [None]
  - DRUG INEFFECTIVE [None]
  - DRY MOUTH [None]
  - EATING DISORDER [None]
  - LIP DRY [None]
  - ORAL DISCOMFORT [None]
  - STOMATITIS [None]
